FAERS Safety Report 4784527-9 (Version None)
Quarter: 2005Q3

REPORT INFORMATION
  Report Type: 
  Country: None (occurrence: None)
  Receive Date: 20050930
  Receipt Date: 20050922
  Transmission Date: 20060218
  Serious: Yes (Life-Threatening)
  Sender: FDA-Public Use
  Company Number: GB-GLAXOSMITHKLINE-B0394816A

PATIENT
  Age: 85 Year
  Sex: Female
  Weight: 59.2 kg

DRUGS (5)
  1. ROSIGLITAZONE [Suspect]
     Dosage: 4MG PER DAY
     Route: 048
     Dates: start: 20050816, end: 20050820
  2. FLUOXETINE [Concomitant]
     Dosage: 20MG PER DAY
     Route: 048
  3. SPIRONOLACTONE [Concomitant]
     Dosage: 25MG PER DAY
     Route: 048
  4. DIGOXIN [Concomitant]
     Dosage: 125MG PER DAY
     Route: 048
  5. METFORMIN [Concomitant]
     Dosage: 500MG THREE TIMES PER DAY
     Route: 048

REACTIONS (4)
  - DEHYDRATION [None]
  - DIABETIC HYPEROSMOLAR COMA [None]
  - DIARRHOEA [None]
  - VOMITING [None]
